FAERS Safety Report 24914041 (Version 2)
Quarter: 2025Q1

REPORT INFORMATION
  Report Type: Report from Study
  Country: CA (occurrence: CA)
  Receive Date: 20250202
  Receipt Date: 20250307
  Transmission Date: 20250408
  Serious: Yes (Hospitalization, Other)
  Sender: NOVARTIS
  Company Number: CA-002147023-NVSC2024CA196613

PATIENT
  Age: 49 Year
  Sex: Female

DRUGS (2)
  1. KISQALI [Suspect]
     Active Substance: RIBOCICLIB
     Indication: Breast cancer metastatic
     Route: 048
     Dates: start: 20240930
  2. KISQALI [Suspect]
     Active Substance: RIBOCICLIB
     Route: 048
     Dates: end: 20241216

REACTIONS (19)
  - Osteomyelitis [Not Recovered/Not Resolved]
  - Wound infection [Unknown]
  - Chest injury [Unknown]
  - Feeling jittery [Unknown]
  - Tremor [Unknown]
  - Palpitations [Unknown]
  - Increased appetite [Unknown]
  - Musculoskeletal chest pain [Unknown]
  - Pain [Unknown]
  - Fatigue [Unknown]
  - Photopsia [Unknown]
  - Ophthalmic migraine [Unknown]
  - Malaise [Unknown]
  - Pyrexia [Unknown]
  - Bone disorder [Unknown]
  - Feeling hot [Unknown]
  - Erythema [Unknown]
  - Suspected COVID-19 [Unknown]
  - Drug ineffective [Unknown]
